FAERS Safety Report 17608109 (Version 1)
Quarter: 2020Q1

REPORT INFORMATION
  Report Type: Spontaneous
  Country: CN (occurrence: CN)
  Receive Date: 20200331
  Receipt Date: 20200331
  Transmission Date: 20200409
  Serious: Yes (Other)
  Sender: FDA-Public Use
  Company Number: CN-009507513-2003CHN010688

PATIENT
  Age: 57 Year
  Sex: Female
  Weight: 74 kg

DRUGS (6)
  1. KEYTRUDA [Suspect]
     Active Substance: PEMBROLIZUMAB
     Indication: LUNG CARCINOMA CELL TYPE UNSPECIFIED STAGE 0
     Dosage: 0.2 GRAM, 100 ML, DAY 1
     Route: 041
     Dates: start: 20200216
  2. PACLITAXEL. [Suspect]
     Active Substance: PACLITAXEL
     Dosage: 0.2 GRAM, 100 ML, DAY 8
     Route: 041
     Dates: start: 20200223
  3. SODIUM CHLORIDE. [Suspect]
     Active Substance: SODIUM CHLORIDE
     Dosage: 100 MILLILITER; DAY 1
     Route: 041
     Dates: start: 20200216
  4. SODIUM CHLORIDE. [Suspect]
     Active Substance: SODIUM CHLORIDE
     Dosage: 100 MILLILITER; DAY 8
     Route: 041
     Dates: start: 20200223
  5. KEYTRUDA [Suspect]
     Active Substance: PEMBROLIZUMAB
     Dosage: 0.2 GRAM, 100 ML, DAY 8
     Route: 041
     Dates: start: 20200223, end: 20200223
  6. PACLITAXEL. [Suspect]
     Active Substance: PACLITAXEL
     Indication: LUNG CARCINOMA CELL TYPE UNSPECIFIED STAGE 0
     Dosage: 0.2 GRAM, 100 ML, DAY 1
     Route: 041
     Dates: start: 20200216

REACTIONS (4)
  - White blood cell count decreased [Recovering/Resolving]
  - Neutrophil count decreased [Recovering/Resolving]
  - Platelet count decreased [Recovering/Resolving]
  - Inappropriate schedule of product administration [Unknown]

NARRATIVE: CASE EVENT DATE: 20200219
